FAERS Safety Report 7355298-7 (Version None)
Quarter: 2011Q1

REPORT INFORMATION
  Report Type: 
  Country: None (occurrence: None)
  Receive Date: 20110316
  Receipt Date: 20110314
  Transmission Date: 20110831
  Serious: Yes (Hospitalization)
  Sender: FDA-Public Use
  Company Number: ES-PFIZER INC-2011055121

PATIENT
  Age: 88 Year
  Sex: Female

DRUGS (6)
  1. TRANKIMAZIN [Suspect]
     Indication: DEPRESSION
     Dosage: 0.75 MG, 1X/DAY
     Route: 048
     Dates: start: 20091230
  2. CITALOPRAM [Interacting]
     Indication: DEPRESSION
     Dosage: 10 MG, 1X/DAY
     Route: 048
     Dates: start: 20091230
  3. TRAMADOL HCL [Interacting]
     Indication: BACK PAIN
     Dosage: 20 GTT, 1X/DAY
     Route: 048
     Dates: start: 20100105, end: 20100111
  4. DIAZEPAM [Interacting]
     Dosage: 5 MG, 1X/DAY
     Route: 048
     Dates: start: 20100105, end: 20100123
  5. TRADONAL [Interacting]
     Indication: BACK PAIN
     Dosage: 50 G, 1X/DAY
     Route: 048
     Dates: start: 20100118, end: 20100123
  6. TRANSTEC TTS [Interacting]
     Indication: BACK PAIN
     Dosage: 11.6 UG, 1X/DAY
     Route: 048
     Dates: start: 20100112, end: 20100117

REACTIONS (2)
  - CONFUSIONAL STATE [None]
  - DRUG INTERACTION [None]
